FAERS Safety Report 5174944-X (Version None)
Quarter: 2006Q4

REPORT INFORMATION
  Report Type: 
  Country: None (occurrence: None)
  Receive Date: 20061214
  Receipt Date: 20060517
  Transmission Date: 20070319
  Serious: No
  Sender: FDA-Public Use
  Company Number: US-AMGEN-KDL179820

PATIENT
  Sex: Female

DRUGS (8)
  1. ENBREL [Suspect]
     Indication: PSORIASIS
     Route: 058
     Dates: start: 20060504
  2. NADOLOL [Concomitant]
  3. SYNTHROID [Concomitant]
  4. VITAMIN CAP [Concomitant]
  5. COENZYME Q10 [Concomitant]
  6. TUMERIC [Concomitant]
  7. VITAMIN B-12 [Concomitant]
  8. ALOE VERA [Concomitant]

REACTIONS (3)
  - INJECTION SITE PRURITUS [None]
  - INJECTION SITE URTICARIA [None]
  - INJECTION SITE WARMTH [None]
